FAERS Safety Report 10195095 (Version 1)
Quarter: 2014Q2

REPORT INFORMATION
  Report Type: Spontaneous
  Country: GB (occurrence: GB)
  Receive Date: 20140526
  Receipt Date: 20140526
  Transmission Date: 20141212
  Serious: Yes (Other)
  Sender: FDA-Public Use
  Company Number: GB-ROCHE-1406977

PATIENT
  Age: 59 Year
  Sex: Female
  Weight: 65 kg

DRUGS (14)
  1. CAPECITABINE [Suspect]
     Indication: GASTROINTESTINAL CARCINOMA
     Route: 048
     Dates: start: 201404, end: 201405
  2. ALENDRONIC ACID [Concomitant]
     Route: 065
  3. BETNESOL [Concomitant]
     Dosage: 2GTT
     Route: 045
  4. CALCICHEW D3 [Concomitant]
     Dosage: 1DF
     Route: 065
  5. CARBOCISTEINE [Concomitant]
     Route: 065
  6. CO-CODAMOL [Concomitant]
     Route: 065
  7. FERROUS FUMARATE [Concomitant]
     Route: 065
  8. LANSOPRAZOLE [Concomitant]
     Route: 065
  9. MONTELUKAST [Concomitant]
     Route: 065
  10. OILATUM PLUS [Concomitant]
     Route: 065
  11. SALMETEROL XINAFOATE/FLUTICASONE PROPIONATE [Concomitant]
     Dosage: 2DF
     Route: 055
  12. TIOTROPIUM BROMIDE [Concomitant]
     Dosage: 1DF
     Route: 065
  13. VENTOLIN INHALER [Concomitant]
     Route: 055
  14. VENTOLIN INHALER [Concomitant]
     Route: 055

REACTIONS (3)
  - Anger [Recovering/Resolving]
  - Frustration [Recovering/Resolving]
  - Mood swings [Recovering/Resolving]
